FAERS Safety Report 11250783 (Version 2)
Quarter: 2015Q3

REPORT INFORMATION
  Report Type: Spontaneous
  Country: US (occurrence: US)
  Receive Date: 20150708
  Receipt Date: 20150831
  Transmission Date: 20151125
  Serious: Yes (Other)
  Sender: FDA-Public Use
  Company Number: US-ELI_LILLY_AND_COMPANY-US201104003736

PATIENT
  Age: 54 Year
  Sex: Female

DRUGS (5)
  1. CYMBALTA [Suspect]
     Active Substance: DULOXETINE HYDROCHLORIDE
     Dosage: 90 MG, UNKNOWN
  2. CYMBALTA [Suspect]
     Active Substance: DULOXETINE HYDROCHLORIDE
     Indication: BACK PAIN
     Dosage: 30 MG, UNKNOWN
  3. CYMBALTA [Suspect]
     Active Substance: DULOXETINE HYDROCHLORIDE
     Dosage: 60 MG, UNKNOWN
  4. SYMBYAX [Suspect]
     Active Substance: FLUOXETINE HYDROCHLORIDE\OLANZAPINE
     Indication: PAIN
     Dosage: UNK, UNKNOWN
  5. CYMBALTA [Suspect]
     Active Substance: DULOXETINE HYDROCHLORIDE
     Dosage: 120 MG, UNKNOWN

REACTIONS (12)
  - Drug ineffective [Unknown]
  - Lethargy [Unknown]
  - Weight increased [Unknown]
  - Pollakiuria [Unknown]
  - Hypokinesia [Unknown]
  - Musculoskeletal stiffness [Unknown]
  - Off label use [Unknown]
  - Hypoaesthesia [Unknown]
  - Dizziness [Unknown]
  - Drug withdrawal syndrome [Unknown]
  - Hypertension [Unknown]
  - Pain [Unknown]
